FAERS Safety Report 8094539-8 (Version None)
Quarter: 2012Q1

REPORT INFORMATION
  Report Type: 
  Country: None (occurrence: None)
  Receive Date: 20120131
  Receipt Date: 20120130
  Transmission Date: 20120608
  Serious: Yes (Hospitalization)
  Sender: FDA-Public Use
  Company Number: HN-BAYER-2012-009368

PATIENT
  Age: 66 Year
  Sex: Female

DRUGS (3)
  1. ULTRAVIST 150 [Suspect]
     Dosage: 15 ML
     Route: 048
  2. ULTRAVIST 150 [Suspect]
     Dosage: UNK
  3. ULTRAVIST 150 [Suspect]
     Indication: COMPUTERISED TOMOGRAM
     Dosage: 30 ML, ONCE
     Route: 042

REACTIONS (3)
  - BRONCHOSPASM [None]
  - RESPIRATORY TRACT INFLAMMATION [None]
  - SKIN REACTION [None]
